FAERS Safety Report 8140430-8 (Version None)
Quarter: 2012Q1

REPORT INFORMATION
  Report Type: 
  Country: None (occurrence: None)
  Receive Date: 20120216
  Receipt Date: 20120208
  Transmission Date: 20120608
  Serious: Yes (Other)
  Sender: FDA-Public Use
  Company Number: US-CELGENEUS-163-21880-11110197

PATIENT
  Sex: Male
  Weight: 70.98 kg

DRUGS (15)
  1. CLONAZEPAM [Concomitant]
     Dosage: 2
     Route: 048
  2. EVOXAC [Concomitant]
     Dosage: 2
     Route: 048
  3. REVLIMID [Suspect]
     Dosage: 25 MILLIGRAM
     Route: 048
     Dates: start: 20110610
  4. CODEINE PHOSPHATE AND ACETAMINOPHEN [Concomitant]
     Dosage: 300-30MG
     Route: 048
  5. REVLIMID [Suspect]
  6. METOPROLOL TARTRATE [Concomitant]
     Dosage: 1/2 TAB
     Route: 048
  7. PLAVIX [Concomitant]
     Dosage: 1
     Route: 048
  8. ASPIRIN [Concomitant]
     Dosage: 1
     Route: 048
  9. FOLIC ACID [Concomitant]
     Dosage: 1 MILLIGRAM
     Route: 048
  10. LORAZEPAM [Concomitant]
     Dosage: 1 MILLIGRAM
     Route: 048
  11. MULTI-VITAMINS [Concomitant]
     Dosage: 1 TABLET
     Route: 048
  12. ENALAPRIL [Concomitant]
     Dosage: 1
     Route: 048
  13. FAMOTIDINE [Concomitant]
     Dosage: 1
     Route: 048
  14. GABAPENTIN [Concomitant]
     Dosage: 300 MILLIGRAM
     Route: 048
  15. LIPITOR [Concomitant]
     Dosage: 1
     Route: 048

REACTIONS (3)
  - BLINDNESS [None]
  - HEARING IMPAIRED [None]
  - FATIGUE [None]
